FAERS Safety Report 5069154-0 (Version None)
Quarter: 2006Q3

REPORT INFORMATION
  Report Type: 
  Country: None (occurrence: None)
  Receive Date: 20060731
  Receipt Date: 20060510
  Transmission Date: 20061208
  Serious: Yes (Death)
  Sender: FDA-Public Use
  Company Number: 200613169GDS

PATIENT
  Age: 42 Year
  Sex: Male
  Weight: 71 kg

DRUGS (5)
  1. APROTININ [Suspect]
     Indication: HEART TRANSPLANT
     Dosage: 10000 KIU ONCE, INTRAVENOUS ; 2000000 KIU, ONCE, INTRAVENOUS ; 500000 KIU, Q1HR, INTRAVENOUS ; 20000
     Route: 042
  2. HEPARIN [Concomitant]
  3. DIURETICS [Concomitant]
  4. ANTIDIURETICS [Concomitant]
  5. BETA BLOCKERS [Concomitant]

REACTIONS (3)
  - DILATATION VENTRICULAR [None]
  - POST PROCEDURAL PULMONARY EMBOLISM [None]
  - PULMONARY HYPERTENSION [None]
